FAERS Safety Report 4285995-1 (Version None)
Quarter: 2004Q1

REPORT INFORMATION
  Report Type: 
  Country: None (occurrence: None)
  Receive Date: 20040205
  Receipt Date: 20020204
  Transmission Date: 20041129
  Serious: Yes (Life-Threatening, Hospitalization, Other)
  Sender: FDA-Public Use
  Company Number: WAES 0202USA00230

PATIENT
  Age: 42 Year
  Sex: Male
  Weight: 109 kg

DRUGS (17)
  1. ASPIRIN [Concomitant]
     Dates: start: 19951101
  2. TENORMIN [Concomitant]
     Dates: start: 19951101
  3. TENORMIN [Concomitant]
  4. LIPITOR [Concomitant]
     Dates: start: 19951101
  5. CLONIDINE [Concomitant]
     Indication: HYPERTENSION
     Route: 061
     Dates: end: 20010823
  6. CLONIDINE [Concomitant]
     Route: 048
     Dates: start: 20010823
  7. MONOPRIL [Concomitant]
     Dates: start: 19951101
  8. IBUPROFEN [Concomitant]
  9. ANAPROX [Concomitant]
  10. VIOXX [Suspect]
     Indication: LOCALISED OSTEOARTHRITIS
     Route: 048
     Dates: start: 20010301, end: 20010601
  11. VIOXX [Suspect]
     Route: 048
     Dates: start: 20010601, end: 20010801
  12. VIOXX [Suspect]
     Route: 048
     Dates: start: 20010901, end: 20011027
  13. VIOXX [Suspect]
     Route: 048
     Dates: start: 20010823, end: 20010901
  14. VIOXX [Suspect]
     Indication: OSTEOARTHRITIS
     Route: 048
     Dates: start: 20010301, end: 20010601
  15. VIOXX [Suspect]
     Route: 048
     Dates: start: 20010601, end: 20010801
  16. VIOXX [Suspect]
     Route: 048
     Dates: start: 20010901, end: 20011027
  17. VIOXX [Suspect]
     Route: 048
     Dates: start: 20010823, end: 20010901

REACTIONS (29)
  - ACCIDENT [None]
  - ACUTE MYOCARDIAL INFARCTION [None]
  - ANXIETY [None]
  - APPLICATION SITE IRRITATION [None]
  - ARTHRALGIA [None]
  - BACK PAIN [None]
  - BRONCHITIS [None]
  - CHEST PAIN [None]
  - CORONARY ARTERY DISEASE [None]
  - COUGH [None]
  - DIVERTICULUM [None]
  - GASTRITIS [None]
  - GASTROOESOPHAGEAL REFLUX DISEASE [None]
  - GROIN PAIN [None]
  - HAEMORRHOIDS [None]
  - HYPERTENSION [None]
  - JOINT CREPITATION [None]
  - LOWER RESPIRATORY TRACT INFECTION [None]
  - MITRAL VALVE INCOMPETENCE [None]
  - MUSCULOSKELETAL STIFFNESS [None]
  - NASOPHARYNGITIS [None]
  - PLEURAL EFFUSION [None]
  - RECTAL HAEMORRHAGE [None]
  - SKIN IRRITATION [None]
  - SLEEP APNOEA SYNDROME [None]
  - TENSION HEADACHE [None]
  - TRICUSPID VALVE INCOMPETENCE [None]
  - VENTRICULAR HYPERTROPHY [None]
  - WEIGHT INCREASED [None]
